FAERS Safety Report 5320949-5 (Version None)
Quarter: 2007Q2

REPORT INFORMATION
  Report Type: 
  Country: None (occurrence: None)
  Receive Date: 20070504
  Receipt Date: 20070420
  Transmission Date: 20071010
  Serious: Yes (Hospitalization)
  Sender: FDA-Public Use
  Company Number: SP1200700208

PATIENT
  Age: 71 Year
  Sex: Female
  Weight: 81.2 kg

DRUGS (5)
  1. AMITIZA [Suspect]
     Indication: CONSTIPATION
     Dosage: 24 MCG, BID
     Dates: start: 20070301, end: 20070301
  2. TOPROL-XL [Suspect]
     Indication: HYPERTENSION
     Dosage: 25 MG, QD, ORAL
     Route: 048
     Dates: end: 20070301
  3. BENICAR [Suspect]
     Indication: HYPERTENSION
     Dosage: 40 MG, QD, ORAL
     Route: 048
     Dates: end: 20070301
  4. EVISTA [Concomitant]
  5. ZOCOR [Concomitant]

REACTIONS (4)
  - DIARRHOEA [None]
  - HYPERHIDROSIS [None]
  - HYPOTENSION [None]
  - NAUSEA [None]
